FAERS Safety Report 6005132-2 (Version None)
Quarter: 2008Q4

REPORT INFORMATION
  Report Type: 
  Country: None (occurrence: None)
  Receive Date: 20081216
  Receipt Date: 20081210
  Transmission Date: 20090506
  Serious: Yes (Other)
  Sender: FDA-Public Use
  Company Number: CA-ABBOTT-08P-028-0491244-00

PATIENT
  Sex: Female
  Weight: 50 kg

DRUGS (5)
  1. MAVIK [Suspect]
     Indication: HYPERTENSION
     Route: 048
     Dates: start: 20080124
  2. METFORMIN HCL [Concomitant]
     Indication: DIABETES MELLITUS
     Route: 048
     Dates: start: 20040101
  3. CADUET [Concomitant]
     Indication: HYPERLIPIDAEMIA
     Dosage: 10/10 MG, DAILY
     Route: 048
     Dates: start: 20051105
  4. CADUET [Concomitant]
     Indication: HYPERTENSION
  5. BLOPRESS PLUS [Concomitant]
     Indication: HYPERTENSION
     Dosage: 16/12.5 MG, DAILY
     Route: 048
     Dates: start: 20051105

REACTIONS (1)
  - CATARACT [None]
